FAERS Safety Report 6776510-9 (Version None)
Quarter: 2010Q2

REPORT INFORMATION
  Report Type: 
  Country: None (occurrence: None)
  Receive Date: 20100615
  Receipt Date: 20100602
  Transmission Date: 20101027
  Serious: Yes (Other)
  Sender: FDA-Public Use
  Company Number: 7006819

PATIENT
  Age: 44 Year
  Sex: Male

DRUGS (1)
  1. MITOXANTRONE [Suspect]
     Indication: SECONDARY PROGRESSIVE MULTIPLE SCLEROSIS
     Dosage: 12 MG/M2, 1 IN 1 M
     Dates: start: 20020201, end: 20020401

REACTIONS (3)
  - CONTUSION [None]
  - GINGIVAL BLEEDING [None]
  - PYREXIA [None]
